FAERS Safety Report 24727755 (Version 1)
Quarter: 2024Q4

REPORT INFORMATION
  Report Type: Spontaneous
  Country: US (occurrence: None)
  Receive Date: 20241212
  Receipt Date: 20241212
  Transmission Date: 20250115
  Serious: Yes (Hospitalization)
  Sender: Public
  Company Number: None

PATIENT
  Age: 79 Year
  Sex: Male
  Weight: 85 kg

DRUGS (1)
  1. GADOBUTROL [Suspect]
     Active Substance: GADOBUTROL
     Indication: Imaging procedure
     Dosage: OTHER FREQUENCY : ONCE;?
     Route: 042
     Dates: start: 20240528, end: 20240528

REACTIONS (6)
  - Seizure like phenomena [None]
  - Diarrhoea [None]
  - Dizziness [None]
  - Vomiting [None]
  - Dizziness [None]
  - Contrast media reaction [None]

NARRATIVE: CASE EVENT DATE: 20240528
